FAERS Safety Report 11856682 (Version 1)
Quarter: 2015Q4

REPORT INFORMATION
  Report Type: Report from Study
  Country: US (occurrence: US)
  Receive Date: 20151221
  Receipt Date: 20151221
  Transmission Date: 20160305
  Serious: No
  Sender: FDA-Public Use
  Company Number: US-CELGENEUS-USA-2015115119

PATIENT
  Age: 71 Year
  Sex: Female

DRUGS (1)
  1. THALOMID [Suspect]
     Active Substance: THALIDOMIDE
     Indication: PLASMA CELL MYELOMA
     Route: 048

REACTIONS (7)
  - Epistaxis [Unknown]
  - Condition aggravated [Unknown]
  - Spinal fracture [Unknown]
  - Plasma cell myeloma in remission [Unknown]
  - Malaise [Unknown]
  - Haemoptysis [Unknown]
  - Pain [Unknown]
